FAERS Safety Report 8986235 (Version 1)
Quarter: 2012Q4

REPORT INFORMATION
  Report Type: Spontaneous
  Country: US (occurrence: None)
  Receive Date: 20121219
  Receipt Date: 20121219
  Transmission Date: 20130627
  Serious: Yes (Death)
  Sender: FDA-Public Use
  Company Number: None

PATIENT
  Age: 81 Year
  Sex: Male

DRUGS (16)
  1. REVLIMID 5 MG CELGENE [Suspect]
     Indication: MULTIPLE MYELOMA
     Dosage: Revlimid 5 mg every other day orally
     Route: 048
     Dates: start: 201103, end: 201502
  2. SERTRALINE [Concomitant]
  3. TAMSULOSIN [Concomitant]
  4. ISOSORBIDE DINITRATE [Concomitant]
  5. GLIPIZIDE [Concomitant]
  6. NTG [Concomitant]
  7. ALLOPURINOL [Concomitant]
  8. LOVASTATIN [Concomitant]
  9. FINASTERIDE [Concomitant]
  10. TOPROL XL [Concomitant]
  11. BACLOFEN [Concomitant]
  12. OMEPRAZOLE [Concomitant]
  13. FUROSEMIDE [Concomitant]
  14. ONDANSETRON [Concomitant]
  15. MVI [Concomitant]
  16. VITAMIN D3 [Concomitant]

REACTIONS (5)
  - Atrial fibrillation [None]
  - Pneumonia [None]
  - Pulseless electrical activity [None]
  - Cardio-respiratory arrest [None]
  - Loss of consciousness [None]
